FAERS Safety Report 5404540-8 (Version None)
Quarter: 2007Q3

REPORT INFORMATION
  Report Type: 
  Country: None (occurrence: None)
  Receive Date: 20070802
  Receipt Date: 20070730
  Transmission Date: 20080115
  Serious: Yes (Hospitalization)
  Sender: FDA-Public Use
  Company Number: US-ROXANE LABORATORIES, INC-2007-BP-18181RO

PATIENT
  Sex: Female
  Weight: 86 kg

DRUGS (3)
  1. PREDNISONE TAB [Suspect]
     Indication: MULTIPLE SCLEROSIS
     Dates: start: 20000101, end: 20051001
  2. REBIF [Suspect]
     Indication: MULTIPLE SCLEROSIS
     Dosage: 44 MCG, THREE TIMES A WEEK, SUBCUTANEOUSLY
     Route: 058
     Dates: start: 20031119
  3. ANTIHYPERTENSIVE [Concomitant]
     Indication: HYPERTENSION

REACTIONS (4)
  - ABDOMINAL PAIN [None]
  - ARTHRALGIA [None]
  - CHOLELITHIASIS [None]
  - OSTEOARTHRITIS [None]
